FAERS Safety Report 20345572 (Version 1)
Quarter: 2022Q1

REPORT INFORMATION
  Report Type: Spontaneous
  Country: US (occurrence: None)
  Receive Date: 20220115
  Receipt Date: 20220115
  Transmission Date: 20220424
  Serious: No
  Sender: FDA-Public Use
  Company Number: None

PATIENT
  Age: 80 Year
  Sex: Male

DRUGS (1)
  1. ENBREL [Suspect]
     Active Substance: ETANERCEPT
     Indication: Product used for unknown indication
     Dosage: 50MG OTHER SUBCUTANESOUS
     Route: 058
     Dates: start: 202109

REACTIONS (2)
  - Malignant melanoma [None]
  - Neoplasm malignant [None]

NARRATIVE: CASE EVENT DATE: 20220115
